FAERS Safety Report 11496228 (Version 2)
Quarter: 2015Q4

REPORT INFORMATION
  Report Type: Spontaneous
  Country: US (occurrence: US)
  Receive Date: 20150911
  Receipt Date: 20151021
  Transmission Date: 20160304
  Serious: Yes (Other)
  Sender: FDA-Public Use
  Company Number: US-PFIZER INC-2015298769

PATIENT
  Age: 54 Year
  Sex: Female
  Weight: 97 kg

DRUGS (3)
  1. XALATAN [Suspect]
     Active Substance: LATANOPROST
     Indication: INTRAOCULAR PRESSURE INCREASED
     Dosage: ONE DROP TO EACH EYE, NIGHTLY
     Route: 047
  2. ALPHAGAN P [Suspect]
     Active Substance: BRIMONIDINE TARTRATE
     Indication: GLAUCOMA
     Dosage: ONE DROP TO EACH EYE, THREE TIMES PER DAY
     Route: 047
  3. COSOPT [Suspect]
     Active Substance: DORZOLAMIDE HYDROCHLORIDE\TIMOLOL MALEATE
     Indication: GLAUCOMA
     Dosage: ONE DROP TO EACH EYE, TWICE DAILY
     Route: 047

REACTIONS (3)
  - Eye disorder [Unknown]
  - Glaucoma [Unknown]
  - Blindness [Unknown]
